FAERS Safety Report 8146730-X (Version None)
Quarter: 2012Q1

REPORT INFORMATION
  Report Type: 
  Country: None (occurrence: None)
  Receive Date: 20120217
  Receipt Date: 20110603
  Transmission Date: 20120608
  Serious: No
  Sender: FDA-Public Use
  Company Number: US-ABBOTT-11P-163-0730776-00

PATIENT
  Sex: Female
  Weight: 70.37 kg

DRUGS (3)
  1. SIMCOR [Suspect]
     Indication: LOW DENSITY LIPOPROTEIN INCREASED
     Dosage: 500/20 MG AT BEDTIME
     Route: 048
     Dates: start: 20101001
  2. ASPIRIN [Concomitant]
     Indication: PROPHYLAXIS
     Dosage: AT BEDTIME
     Route: 048
  3. EFFEXOR [Concomitant]
     Indication: DEPRESSION
     Route: 048

REACTIONS (2)
  - PRURITUS [None]
  - MUSCULOSKELETAL STIFFNESS [None]
